FAERS Safety Report 9501910 (Version 2)
Quarter: 2013Q3

REPORT INFORMATION
  Report Type: Spontaneous
  Country: CA (occurrence: CA)
  Receive Date: 20130905
  Receipt Date: 20130923
  Transmission Date: 20140515
  Serious: Yes (Other)
  Sender: FDA-Public Use
  Company Number: CA-ACTAVIS-2013-15410

PATIENT
  Age: 74 Year
  Sex: Female
  Weight: 61 kg

DRUGS (4)
  1. ROSUVASTATIN (UNKNOWN) [Suspect]
     Indication: BLOOD CHOLESTEROL
     Dosage: 10 MG, DAILY AT BEDTIME
     Dates: start: 2011, end: 20130528
  2. METFORMIN HYDROCHLORIDE (UNKNOWN) [Suspect]
     Indication: PRODUCT USED FOR UNKNOWN INDICATION
  3. GLUCOPHAGE [Suspect]
     Indication: PRODUCT USED FOR UNKNOWN INDICATION
     Dosage: 500 MG,  1/2 TABLET TWICE DAILY
  4. SYNTHROID [Concomitant]
     Indication: PRODUCT USED FOR UNKNOWN INDICATION
     Dosage: 0.05 MICROGRAM, ONCE DAILY

REACTIONS (6)
  - Loss of consciousness [Recovered/Resolved]
  - Blood glucose decreased [Unknown]
  - Insomnia [Unknown]
  - Abdominal discomfort [Unknown]
  - Presyncope [Recovered/Resolved]
  - Fall [Recovered/Resolved]
